FAERS Safety Report 25283578 (Version 1)
Quarter: 2025Q2

REPORT INFORMATION
  Report Type: Spontaneous
  Country: US (occurrence: US)
  Receive Date: 20250508
  Receipt Date: 20250508
  Transmission Date: 20250716
  Serious: No
  Sender: MERCK SHARP & DOHME LLC
  Company Number: US-009507513-2282656

PATIENT
  Sex: Female
  Weight: 67.1 kg

DRUGS (20)
  1. SOTATERCEPT [Suspect]
     Active Substance: SOTATERCEPT
  2. SOTATERCEPT [Suspect]
     Active Substance: SOTATERCEPT
  3. SOTATERCEPT [Suspect]
     Active Substance: SOTATERCEPT
  4. SOTATERCEPT [Suspect]
     Active Substance: SOTATERCEPT
  5. TREPROSTINIL SODIUM [Suspect]
     Active Substance: TREPROSTINIL SODIUM
     Indication: Pulmonary arterial hypertension
     Route: 058
     Dates: start: 20230328
  6. ADEMPAS [Concomitant]
     Active Substance: RIOCIGUAT
  7. SPIRONOLACTONE AND HYDROCHLOROTHIAZIDE [Concomitant]
     Active Substance: HYDROCHLOROTHIAZIDE\SPIRONOLACTONE
  8. METOPROLOL SUCCINATE [Concomitant]
     Active Substance: METOPROLOL SUCCINATE
  9. TYLENOL [Concomitant]
     Active Substance: ACETAMINOPHEN
  10. PRAVASTATIN SODIUM [Concomitant]
     Active Substance: PRAVASTATIN SODIUM
  11. VITAMIN D3 [Concomitant]
     Active Substance: CHOLECALCIFEROL
  12. POTASSIUM [Concomitant]
     Active Substance: POTASSIUM
  13. ASPIRIN [Concomitant]
     Active Substance: ASPIRIN
  14. DOXYCYCLINE HYCLATE [Concomitant]
     Active Substance: DOXYCYCLINE HYCLATE
  15. OFEV [Concomitant]
     Active Substance: NINTEDANIB
  16. OXYGEN [Concomitant]
     Active Substance: OXYGEN
  17. CALCIUM [Concomitant]
     Active Substance: CALCIUM
  18. LISINOPRIL [Concomitant]
     Active Substance: LISINOPRIL
  19. OMEPRAZOLE [Concomitant]
     Active Substance: OMEPRAZOLE
  20. TOPROL XL [Concomitant]
     Active Substance: METOPROLOL SUCCINATE

REACTIONS (3)
  - Dizziness [Recovered/Resolved]
  - Epistaxis [Unknown]
  - Headache [Recovered/Resolved]
